FAERS Safety Report 20780407 (Version 3)
Quarter: 2022Q2

REPORT INFORMATION
  Report Type: Spontaneous
  Country: DE (occurrence: DE)
  Receive Date: 20220504
  Receipt Date: 20220512
  Transmission Date: 20220721
  Serious: No
  Sender: FDA-Public Use
  Company Number: DE-SANOFI-01079737

PATIENT
  Age: 81 Year
  Sex: Female

DRUGS (1)
  1. MULTAQ [Suspect]
     Active Substance: DRONEDARONE
     Indication: Arrhythmia
     Dosage: UNK UNK, BID (ONLY HALF A DOSE IN THE MORNING AND HALF IN THE EVENING)
     Dates: start: 20220416, end: 20220429

REACTIONS (5)
  - Chills [Unknown]
  - Diarrhoea [Not Recovered/Not Resolved]
  - Eczema [Unknown]
  - Fatigue [Unknown]
  - Wrong technique in product usage process [Unknown]

NARRATIVE: CASE EVENT DATE: 20220422
